FAERS Safety Report 12942648 (Version 1)
Quarter: 2016Q4

REPORT INFORMATION
  Report Type: Spontaneous
  Country: US (occurrence: US)
  Receive Date: 20161114
  Receipt Date: 20161114
  Transmission Date: 20170207
  Serious: No
  Sender: FDA-Public Use
  Company Number: US-ASTRAZENECA-2016SF14993

PATIENT
  Age: 81 Year
  Sex: Female

DRUGS (3)
  1. CRESTOR [Suspect]
     Active Substance: ROSUVASTATIN CALCIUM
     Dosage: 40MG DOSAGE FOR ABOUT 4 DAYS UNKNOWN
     Route: 048
  2. CRESTOR [Suspect]
     Active Substance: ROSUVASTATIN CALCIUM
     Dosage: 40.0MG UNKNOWN
     Route: 048
  3. THYROID MEDICINE [Concomitant]
     Active Substance: UNSPECIFIED INGREDIENT

REACTIONS (18)
  - Blood glucose decreased [Unknown]
  - Syncope [Unknown]
  - Liver disorder [Unknown]
  - Asthenia [Unknown]
  - Diabetes mellitus [Unknown]
  - Drug dose omission [Unknown]
  - Blood cholesterol increased [Unknown]
  - Somnolence [Unknown]
  - Myopathy [Unknown]
  - Vomiting [Unknown]
  - General physical health deterioration [Unknown]
  - Blood test abnormal [Unknown]
  - Starvation [Unknown]
  - Decreased appetite [Unknown]
  - Cataract [Unknown]
  - Blood triglycerides increased [Unknown]
  - Muscular weakness [Unknown]
  - Neuropathy peripheral [Unknown]
